FAERS Safety Report 7928541-0 (Version None)
Quarter: 2011Q4

REPORT INFORMATION
  Report Type: 
  Country: None (occurrence: None)
  Receive Date: 20111118
  Receipt Date: 20111107
  Transmission Date: 20120403
  Serious: Yes (Hospitalization)
  Sender: FDA-Public Use
  Company Number: US-BRISTOL-MYERS SQUIBB COMPANY-16239063

PATIENT
  Age: 30 Year
  Sex: Female

DRUGS (3)
  1. AMIODARONE HCL [Suspect]
  2. METOPROLOL TARTRATE [Suspect]
  3. DILTIAZEM HCL [Suspect]

REACTIONS (1)
  - CARDIOGENIC SHOCK [None]
